FAERS Safety Report 14893318 (Version 1)
Quarter: 2018Q2

REPORT INFORMATION
  Report Type: Spontaneous
  Country: US (occurrence: US)
  Receive Date: 20180514
  Receipt Date: 20180514
  Transmission Date: 20180711
  Serious: No
  Sender: FDA-Public Use
  Company Number: US-ELI_LILLY_AND_COMPANY-US201804015091

PATIENT

DRUGS (1)
  1. CYMBALTA [Suspect]
     Active Substance: DULOXETINE HYDROCHLORIDE
     Indication: PAIN
     Dosage: UNK UNK, UNKNOWN
     Route: 065

REACTIONS (8)
  - Drug intolerance [Unknown]
  - Electric shock [Unknown]
  - Dysuria [Unknown]
  - Insomnia [Unknown]
  - Sleep paralysis [Unknown]
  - Palpitations [Unknown]
  - Drug dependence [Unknown]
  - Drug withdrawal syndrome [Unknown]
